FAERS Safety Report 19299261 (Version 2)
Quarter: 2021Q2

REPORT INFORMATION
  Report Type: Spontaneous
  Country: IN (occurrence: IN)
  Receive Date: 20210524
  Receipt Date: 20210603
  Transmission Date: 20210717
  Serious: No
  Sender: FDA-Public Use
  Company Number: IN-PFIZER INC-2021072734

PATIENT
  Age: 63 Year
  Sex: Female

DRUGS (3)
  1. CCM [Concomitant]
     Dosage: 1 DF, ALTERNATE DAY
  2. FULVESTRANT. [Concomitant]
     Active Substance: FULVESTRANT
     Dosage: 250 MG
     Route: 030
  3. PALBACE [Suspect]
     Active Substance: PALBOCICLIB
     Indication: BREAST CANCER METASTATIC
     Dosage: 125 MG, 1X/DAY
     Route: 048
     Dates: start: 20200904

REACTIONS (4)
  - Heart rate increased [Unknown]
  - Blood pressure fluctuation [Unknown]
  - Back pain [Unknown]
  - Constipation [Unknown]
